FAERS Safety Report 7675942-4 (Version None)
Quarter: 2011Q3

REPORT INFORMATION
  Report Type: 
  Country: None (occurrence: None)
  Receive Date: 20110811
  Receipt Date: 20110804
  Transmission Date: 20111222
  Serious: Yes (Hospitalization)
  Sender: FDA-Public Use
  Company Number: 2009BI012039

PATIENT
  Age: 24 Year
  Sex: Female

DRUGS (5)
  1. BACLOFEN [Concomitant]
     Indication: MUSCLE SPASTICITY
     Dates: start: 20000101
  2. TYSABRI [Suspect]
     Indication: MULTIPLE SCLEROSIS
     Route: 042
     Dates: start: 20080701, end: 20090414
  3. TOPAMAX [Concomitant]
     Indication: HEADACHE
     Dates: start: 20000101
  4. TOPAMAX [Concomitant]
     Indication: PAIN
     Dates: start: 20000101
  5. GABAPENTIN [Concomitant]
     Indication: HEADACHE
     Dates: start: 20000101

REACTIONS (3)
  - URINARY TRACT INFECTION [None]
  - MULTIPLE SCLEROSIS RELAPSE [None]
  - MULTIPLE SCLEROSIS [None]
